FAERS Safety Report 21679806 (Version 1)
Quarter: 2022Q4

REPORT INFORMATION
  Report Type: Report from Study
  Country: US (occurrence: US)
  Receive Date: 20221205
  Receipt Date: 20221205
  Transmission Date: 20230112
  Serious: No
  Sender: FDA-Public Use
  Company Number: US-ABBVIE-4189730

PATIENT
  Age: 64 Year
  Sex: Female

DRUGS (18)
  1. SKYRIZI [Suspect]
     Active Substance: RISANKIZUMAB-RZAA
     Indication: Asthma
     Dosage: FORM STRENGTH :150 MG
     Route: 058
     Dates: start: 20220517
  2. METOPROL SUC [Concomitant]
     Indication: Product used for unknown indication
     Dosage: TAB 50MG ER
  3. VENTOLIN HFA AER [Concomitant]
     Indication: Product used for unknown indication
  4. VENLAFAXINE [Concomitant]
     Active Substance: VENLAFAXINE HYDROCHLORIDE
     Indication: Product used for unknown indication
     Dosage: CAP 75MG ER
  5. REPATHA [Concomitant]
     Active Substance: EVOLOCUMAB
     Indication: Product used for unknown indication
     Dosage: INJ 140MG/ML; SYMBICORT AER 80-4.5
  6. SYMBICORT AER [Concomitant]
     Indication: Product used for unknown indication
     Dosage: 80-4.5
  7. FISH OIL CON [Concomitant]
     Indication: Product used for unknown indication
  8. CLOBETASOL [Concomitant]
     Active Substance: CLOBETASOL
     Indication: Product used for unknown indication
     Dosage: SPR 0.05%
  9. TOPIRAMATE [Concomitant]
     Active Substance: TOPIRAMATE
     Indication: Product used for unknown indication
     Dosage: CAP ER 25MG
  10. PANTOPRAZOLE [Concomitant]
     Active Substance: PANTOPRAZOLE
     Indication: Product used for unknown indication
     Dosage: TAB 40MG;
  11. PENNSAID [Concomitant]
     Active Substance: DICLOFENAC SODIUM
     Indication: Product used for unknown indication
     Dosage: SOL 2%;
  12. BAYER CHILD CHW ASA [Concomitant]
     Indication: Product used for unknown indication
  13. METOPRL/HCTZ [Concomitant]
     Indication: Product used for unknown indication
     Dosage: TAB 50-25MG;
  14. DUPIXENT [Concomitant]
     Active Substance: DUPILUMAB
     Indication: Product used for unknown indication
     Dosage: INJ 300/2ML
  15. DUPIXENT [Concomitant]
     Active Substance: DUPILUMAB
     Indication: Product used for unknown indication
     Dosage: 300 MG/2ML SYR (4=2)
  16. REPATHA [Concomitant]
     Active Substance: EVOLOCUMAB
     Indication: Product used for unknown indication
     Dosage: 140MG/ML SURECLICK 2=2
  17. GLIP/METFORM [Concomitant]
     Indication: Product used for unknown indication
     Dosage: TAB 5-500MG
  18. SYNTHROID [Concomitant]
     Active Substance: LEVOTHYROXINE SODIUM
     Indication: Product used for unknown indication
     Dosage: 112 MCG

REACTIONS (1)
  - Illness [Recovered/Resolved]

NARRATIVE: CASE EVENT DATE: 20221101
